FAERS Safety Report 25307555 (Version 3)
Quarter: 2025Q3

REPORT INFORMATION
  Report Type: Spontaneous
  Country: JP (occurrence: JP)
  Receive Date: 20250513
  Receipt Date: 20250803
  Transmission Date: 20251021
  Serious: Yes (Other)
  Sender: ALEXION PHARMACEUTICALS
  Company Number: JP-HALEON-2241096

PATIENT
  Age: 69 Year
  Sex: Male

DRUGS (2)
  1. NEXIUM [Suspect]
     Active Substance: ESOMEPRAZOLE MAGNESIUM
     Indication: Barrett^s oesophagus
     Dosage: BEFORE DIAGNOSIS
     Route: 065
  2. NEXIUM [Suspect]
     Active Substance: ESOMEPRAZOLE MAGNESIUM
     Route: 065

REACTIONS (7)
  - Gastric mucosal lesion [Recovered/Resolved]
  - Gastric dysplasia [Recovered/Resolved]
  - Gastric adenoma [Recovered/Resolved]
  - Hypergastrinaemia [Recovered/Resolved]
  - Colorectal adenoma [Unknown]
  - Disease recurrence [Recovered/Resolved]
  - Off label use [Not Recovered/Not Resolved]
